FAERS Safety Report 5337872-2 (Version None)
Quarter: 2007Q2

REPORT INFORMATION
  Report Type: 
  Country: None (occurrence: None)
  Receive Date: 20070312
  Receipt Date: 20070110
  Transmission Date: 20071010
  Serious: Yes (Other)
  Sender: FDA-Public Use
  Company Number: AMI0000396

PATIENT
  Age: 75 Year
  Sex: Male

DRUGS (4)
  1. ETHACRYNIC ACID 25MG - - MANUFACTURER UNKNOWN [Suspect]
     Dosage: 25 MG PO BID
     Route: 048
     Dates: start: 20061002, end: 20061210
  2. ENALAPRIL MALEATE [Concomitant]
  3. LEVOTHYROXINE SODIUM [Concomitant]
  4. LINEZOLID [Concomitant]

REACTIONS (3)
  - BOWEL SOUNDS ABNORMAL [None]
  - DIARRHOEA [None]
  - INCONTINENCE [None]
